FAERS Safety Report 5467318-5 (Version None)
Quarter: 2007Q3

REPORT INFORMATION
  Report Type: 
  Country: None (occurrence: None)
  Receive Date: 20070925
  Receipt Date: 20070913
  Transmission Date: 20080115
  Serious: Yes (Other)
  Sender: FDA-Public Use
  Company Number: US-PFIZER INC-2006029704

PATIENT
  Sex: Female

DRUGS (2)
  1. BEXTRA [Suspect]
     Indication: PAIN IN EXTREMITY
     Route: 048
  2. BEXTRA [Suspect]
     Indication: ONYCHOMYCOSIS

REACTIONS (1)
  - STEVENS-JOHNSON SYNDROME [None]
